FAERS Safety Report 17563280 (Version 6)
Quarter: 2025Q1

REPORT INFORMATION
  Report Type: Spontaneous
  Country: US (occurrence: US)
  Receive Date: 20200319
  Receipt Date: 20250124
  Transmission Date: 20250408
  Serious: Yes (Other)
  Sender: GILEAD
  Company Number: US-GILEAD-2020-0455426

PATIENT
  Age: 55 Year
  Sex: Female

DRUGS (8)
  1. ATRIPLA [Suspect]
     Active Substance: EFAVIRENZ\EMTRICITABINE\TENOFOVIR DISOPROXIL FUMARATE
     Indication: HIV infection
     Route: 048
     Dates: start: 201207, end: 201504
  2. ATRIPLA [Suspect]
     Active Substance: EFAVIRENZ\EMTRICITABINE\TENOFOVIR DISOPROXIL FUMARATE
     Route: 065
     Dates: start: 20120723, end: 201301
  3. ATRIPLA [Suspect]
     Active Substance: EFAVIRENZ\EMTRICITABINE\TENOFOVIR DISOPROXIL FUMARATE
     Route: 065
     Dates: start: 20130127, end: 201505
  4. ATRIPLA [Suspect]
     Active Substance: EFAVIRENZ\EMTRICITABINE\TENOFOVIR DISOPROXIL FUMARATE
     Route: 048
     Dates: start: 20130127, end: 20150421
  5. STRIBILD [Suspect]
     Active Substance: COBICISTAT\ELVITEGRAVIR\EMTRICITABINE\TENOFOVIR DISOPROXIL FUMARATE
     Indication: HIV infection
     Route: 048
     Dates: start: 20150421, end: 20161018
  6. STRIBILD [Suspect]
     Active Substance: COBICISTAT\ELVITEGRAVIR\EMTRICITABINE\TENOFOVIR DISOPROXIL FUMARATE
     Route: 048
     Dates: start: 20150421, end: 20161114
  7. BIKTARVY [Concomitant]
     Active Substance: BICTEGRAVIR SODIUM\EMTRICITABINE\TENOFOVIR ALAFENAMIDE FUMARATE
  8. GENVOYA [Concomitant]
     Active Substance: COBICISTAT\ELVITEGRAVIR\EMTRICITABINE\TENOFOVIR ALAFENAMIDE FUMARATE

REACTIONS (7)
  - Osteoporosis [Not Recovered/Not Resolved]
  - Renal failure [Not Recovered/Not Resolved]
  - Bone density decreased [Unknown]
  - Economic problem [Unknown]
  - Emotional distress [Unknown]
  - Pain [Unknown]
  - Tooth loss [Unknown]

NARRATIVE: CASE EVENT DATE: 20170710
